FAERS Safety Report 21157560 (Version 1)
Quarter: 2022Q3

REPORT INFORMATION
  Report Type: Spontaneous
  Country: US (occurrence: None)
  Receive Date: 20220801
  Receipt Date: 20220801
  Transmission Date: 20221027
  Serious: No
  Sender: FDA-Public Use
  Company Number: None

PATIENT
  Age: 62 Year
  Sex: Female

DRUGS (1)
  1. BENLYSTA [Suspect]
     Active Substance: BELIMUMAB
     Dosage: 200MG OTHER SUBCUTANEOUS
     Route: 058
     Dates: start: 202104

REACTIONS (1)
  - Coccidioidomycosis [None]

NARRATIVE: CASE EVENT DATE: 20220801
